FAERS Safety Report 8074466-2 (Version None)
Quarter: 2012Q1

REPORT INFORMATION
  Report Type: 
  Country: None (occurrence: None)
  Receive Date: 20120126
  Receipt Date: 20120123
  Transmission Date: 20120608
  Serious: Yes (Other)
  Sender: FDA-Public Use
  Company Number: FR-PFIZER INC-K201101076

PATIENT
  Age: 74 Year
  Sex: Female

DRUGS (15)
  1. CETIRIZINE [Concomitant]
     Dosage: UNK
     Dates: start: 20110513, end: 20110610
  2. ASPIRIN [Concomitant]
     Dosage: UNK
     Dates: start: 20110601, end: 20110630
  3. ALTACE [Suspect]
     Dosage: UNK
     Route: 048
  4. TRAMADOL [Concomitant]
     Dosage: UNK
     Dates: start: 20110601, end: 20110630
  5. ALCLOMETASONE DIPROPIONATE [Concomitant]
     Dosage: UNK
     Dates: start: 20110621, end: 20110802
  6. AMITRIPTYLINE HYDROCHLORIDE [Concomitant]
     Dosage: UNK
     Dates: start: 20110601, end: 20110630
  7. FLUOROURACIL [Concomitant]
     Dosage: UNK
     Dates: start: 20110621, end: 20110802
  8. HYDROXOCOBALAMIN [Concomitant]
     Dosage: UNK
     Dates: start: 20110620, end: 20110621
  9. LEVOTHYROXINE [Concomitant]
     Dosage: UNK
     Dates: start: 20110601, end: 20110825
  10. RISEDRONATE SODIUM [Concomitant]
     Dosage: UNK
     Dates: start: 20110601, end: 20110630
  11. DILTIAZEM HCL [Concomitant]
     Dosage: UNK
     Dates: start: 20110513, end: 20110623
  12. INFLUENZA VIRUS VACCINE [Concomitant]
     Dosage: UNK
  13. ISPAGHULA HUSK [Concomitant]
     Dosage: UNK
     Dates: start: 20110601, end: 20110630
  14. PARACETAMOL [Concomitant]
     Dosage: UNK
     Dates: start: 20110728, end: 20110825
  15. SIMVASTATIN [Concomitant]
     Dosage: UNK
     Dates: start: 20110601, end: 20110825

REACTIONS (1)
  - RESTLESSNESS [None]
